FAERS Safety Report 4526678-X (Version None)
Quarter: 2004Q4

REPORT INFORMATION
  Report Type: 
  Country: None (occurrence: None)
  Receive Date: 20041214
  Receipt Date: 20041203
  Transmission Date: 20050328
  Serious: Yes (Death, Hospitalization)
  Sender: FDA-Public Use
  Company Number: BE-GLAXOSMITHKLINE-B0360220A

PATIENT
  Age: 55 Year
  Sex: Male
  Weight: 91 kg

DRUGS (1)
  1. AUGMENTIN '125' [Suspect]
     Indication: ASCITES INFECTION
     Route: 048
     Dates: start: 20040901, end: 20040901

REACTIONS (3)
  - BILIARY TRACT DISORDER [None]
  - CHOLESTASIS [None]
  - PORTAL HYPERTENSION [None]
